FAERS Safety Report 7717153-X (Version None)
Quarter: 2011Q3

REPORT INFORMATION
  Report Type: 
  Country: None (occurrence: None)
  Receive Date: 20110830
  Receipt Date: 20100816
  Transmission Date: 20111222
  Serious: No
  Sender: FDA-Public Use
  Company Number: US-BAYER-201030702NA

PATIENT
  Age: 85 Year
  Sex: Male

DRUGS (8)
  1. ASMANEX TWISTHALER [Concomitant]
  2. LISINOPRIL [Concomitant]
  3. COLACE [Concomitant]
  4. FORADIL [Concomitant]
  5. SPIRIVA [Concomitant]
  6. ASCORBIC ACID [Concomitant]
  7. FERROUS SULFATE TAB [Concomitant]
  8. LEVITRA [Suspect]
     Indication: ERECTILE DYSFUNCTION
     Dosage: 10 MG, UNK
     Route: 048

REACTIONS (2)
  - NAUSEA [None]
  - GASTRIC DISORDER [None]
